FAERS Safety Report 4739098-X (Version None)
Quarter: 2005Q3

REPORT INFORMATION
  Report Type: 
  Country: None (occurrence: None)
  Receive Date: 20050810
  Receipt Date: 20050413
  Transmission Date: 20060218
  Serious: No
  Sender: FDA-Public Use
  Company Number: US-GLAXOSMITHKLINE-A0554099A

PATIENT
  Sex: Female

DRUGS (1)
  1. PAXIL CR [Suspect]
     Indication: FIBROMYALGIA
     Route: 048

REACTIONS (7)
  - ABASIA [None]
  - ANGER [None]
  - FALL [None]
  - MOOD SWINGS [None]
  - NIGHT SWEATS [None]
  - SLEEP TERROR [None]
  - VERTIGO [None]
